FAERS Safety Report 4774430-2 (Version None)
Quarter: 2005Q3

REPORT INFORMATION
  Report Type: 
  Country: None (occurrence: None)
  Receive Date: 20050921
  Receipt Date: 20050913
  Transmission Date: 20060218
  Serious: No
  Sender: FDA-Public Use
  Company Number: US-JNJFOC-20050705960

PATIENT
  Sex: Female

DRUGS (7)
  1. LEVAQUIN [Suspect]
     Indication: BRONCHITIS
     Route: 048
  2. PROZAC [Suspect]
     Indication: DEPRESSION
  3. ALEVE [Suspect]
     Indication: DRUG USE FOR UNKNOWN INDICATION
  4. INSULIN [Concomitant]
  5. HUMALOG [Concomitant]
     Route: 058
  6. ASPIRIN [Concomitant]
     Indication: PROPHYLAXIS
  7. LENTE INSULIN [Concomitant]

REACTIONS (1)
  - PHOTODERMATOSIS [None]
